FAERS Safety Report 5119455-2 (Version None)
Quarter: 2006Q3

REPORT INFORMATION
  Report Type: 
  Country: None (occurrence: None)
  Receive Date: 20060928
  Receipt Date: 20060920
  Transmission Date: 20061208
  Serious: Yes (Other)
  Sender: FDA-Public Use
  Company Number: 2006-02345

PATIENT
  Age: 50 Year
  Sex: Female
  Weight: 70.3 kg

DRUGS (1)
  1. VELCADE [Suspect]
     Indication: ACCIDENTAL EXPOSURE
     Dosage: RESPIRATORY
     Route: 055
     Dates: start: 20060908, end: 20060908

REACTIONS (5)
  - ACCIDENTAL EXPOSURE [None]
  - CHEST PAIN [None]
  - COUGH [None]
  - ELECTROCARDIOGRAM T WAVE ABNORMAL [None]
  - THROAT IRRITATION [None]
